FAERS Safety Report 8789552 (Version 1)
Quarter: 2012Q4

REPORT INFORMATION
  Report Type: Spontaneous
  Country: US (occurrence: None)
  Receive Date: 20120905
  Receipt Date: 20120905
  Transmission Date: 20130627
  Serious: Yes (Disabling, Other)
  Sender: FDA-Public Use
  Company Number: FK201202469

PATIENT
  Sex: Female

DRUGS (1)
  1. HEPARIN [Suspect]
     Indication: PRODUCT USED FOR UNKNOWN INDICATION
     Dosage: TO UPPER LEG-4 SEPARATE INJECTIONS,

REACTIONS (9)
  - Hypoaesthesia [None]
  - Hypoaesthesia [None]
  - Sensory disturbance [None]
  - Sensory disturbance [None]
  - Paraesthesia [None]
  - Pain in extremity [None]
  - Paraesthesia [None]
  - Injection site haemorrhage [None]
  - Injection site haemorrhage [None]
